FAERS Safety Report 25075536 (Version 6)
Quarter: 2025Q2

REPORT INFORMATION
  Report Type: Spontaneous
  Country: US (occurrence: US)
  Receive Date: 20250313
  Receipt Date: 20250513
  Transmission Date: 20250717
  Serious: Yes (Hospitalization)
  Sender: PFIZER
  Company Number: US-PFIZER INC-202500054857

PATIENT
  Age: 35 Year
  Sex: Male

DRUGS (4)
  1. XYNTHA [Suspect]
     Active Substance: MOROCTOCOG ALFA
     Indication: Haemorrhage
     Dosage: 50 UI/KG (3900 UNITS) IV QDAYX100 THEN Q TRNN Q48TT X 3 FOR ON DEMAND: MINOR 250/KG, MAJOR 50/KG
     Route: 042
  2. XYNTHA [Suspect]
     Active Substance: MOROCTOCOG ALFA
     Indication: Gastrointestinal haemorrhage
     Dosage: 50 UNITS/KG (3900 +/- 10% UNITS PER DOSE) IV DAILY X 10 DOSES, FOLLOWED BY 50 UNITS/KG IV Q48 HOURS
     Route: 042
  3. XYNTHA [Suspect]
     Active Substance: MOROCTOCOG ALFA
     Indication: Haemarthrosis
     Route: 042
  4. XYNTHA [Suspect]
     Active Substance: MOROCTOCOG ALFA

REACTIONS (2)
  - Haemorrhage [Unknown]
  - Product prescribing issue [Unknown]
